FAERS Safety Report 14039200 (Version 1)
Quarter: 2017Q4

REPORT INFORMATION
  Report Type: Spontaneous
  Country: IN (occurrence: IN)
  Receive Date: 20171004
  Receipt Date: 20171004
  Transmission Date: 20180321
  Serious: Yes (Death)
  Sender: FDA-Public Use
  Company Number: None

PATIENT
  Age: 73 Year
  Sex: Male
  Weight: 85 kg

DRUGS (6)
  1. ALPHA D3 [Concomitant]
  2. FULTIVATE [Concomitant]
  3. JAKAVI [Suspect]
     Active Substance: RUXOLITINIB
     Indication: MYELOFIBROSIS
     Dosage: ?          QUANTITY:14 TABLET(S);?
     Route: 048
     Dates: start: 20170905, end: 20170925
  4. FEBUTAZ [Concomitant]
  5. PAN -D [Concomitant]
  6. HALCONATE [Concomitant]

REACTIONS (9)
  - General physical health deterioration [None]
  - Platelet count increased [None]
  - Pyrexia [None]
  - Pneumonia [None]
  - Apallic syndrome [None]
  - Therapy cessation [None]
  - Typhoid fever [None]
  - Stress [None]
  - Gastric haemorrhage [None]

NARRATIVE: CASE EVENT DATE: 20170923
